FAERS Safety Report 8237913-9 (Version None)
Quarter: 2012Q1

REPORT INFORMATION
  Report Type: 
  Country: None (occurrence: None)
  Receive Date: 20120327
  Receipt Date: 20120315
  Transmission Date: 20120608
  Serious: Yes (Life-Threatening, Hospitalization)
  Sender: FDA-Public Use
  Company Number: FR-PFIZER INC-2012077060

PATIENT
  Age: 71 Year
  Sex: Female

DRUGS (6)
  1. ZOFRAN [Suspect]
     Indication: PREMEDICATION
     Dosage: 8 MG, UNK
     Route: 042
     Dates: start: 20100809, end: 20100809
  2. POLARAMINE [Concomitant]
     Dosage: 0.5 MG, UNK
     Dates: start: 20100809, end: 20100809
  3. CARBOPLATIN [Suspect]
     Indication: ENDOMETRIAL CANCER
     Dosage: 110 MG, UNK
     Route: 042
     Dates: start: 20100809, end: 20100809
  4. PACLITAXEL [Suspect]
     Indication: ENDOMETRIAL CANCER
     Dosage: 325 MG, UNK
     Route: 042
     Dates: start: 20100809, end: 20100809
  5. ZANTAC [Suspect]
     Indication: PREMEDICATION
     Dosage: 50 MG, UNK
     Route: 042
     Dates: start: 20100809, end: 20100809
  6. METHYLPREDNISOLONE [Concomitant]
     Dosage: 120 MG, UNK
     Dates: start: 20100809, end: 20100809

REACTIONS (6)
  - ANAPHYLACTIC SHOCK [None]
  - CARDIO-RESPIRATORY ARREST [None]
  - BRADYCARDIA [None]
  - SKIN REACTION [None]
  - HYPOTENSION [None]
  - MALAISE [None]
